FAERS Safety Report 24631658 (Version 1)
Quarter: 2024Q4

REPORT INFORMATION
  Report Type: Spontaneous
  Country: US (occurrence: US)
  Receive Date: 20241118
  Receipt Date: 20241118
  Transmission Date: 20250114
  Serious: No
  Sender: PFIZER
  Company Number: US-PFIZER INC-202400301401

PATIENT
  Age: 37 Year
  Sex: Female
  Weight: 68.04 kg

DRUGS (2)
  1. NURTEC ODT [Suspect]
     Active Substance: RIMEGEPANT SULFATE
     Indication: Migraine
     Dosage: 75 MG
     Route: 048
  2. NUVARING [Concomitant]
     Active Substance: ETHINYL ESTRADIOL\ETONOGESTREL
     Indication: Contraception
     Dosage: UNK

REACTIONS (8)
  - Panic attack [Unknown]
  - Feeling hot [Unknown]
  - Feeling cold [Unknown]
  - Palpitations [Unknown]
  - Dizziness [Unknown]
  - Asthenia [Unknown]
  - Nervousness [Unknown]
  - Muscle tightness [Unknown]

NARRATIVE: CASE EVENT DATE: 20241019
